FAERS Safety Report 10688141 (Version 1)
Quarter: 2014Q4

REPORT INFORMATION
  Report Type: Spontaneous
  Country: US (occurrence: None)
  Receive Date: 20141231
  Receipt Date: 20141231
  Transmission Date: 20150529
  Serious: Yes (Other)
  Sender: FDA-Public Use
  Company Number: None

PATIENT
  Age: 44 Year
  Sex: Female
  Weight: 64.86 kg

DRUGS (2)
  1. INSULIN [Suspect]
     Active Substance: INSULIN NOS
  2. OMNIPOD [Concomitant]

REACTIONS (3)
  - Injection site pain [None]
  - Blood glucose increased [None]
  - Device malfunction [None]

NARRATIVE: CASE EVENT DATE: 20141225
